FAERS Safety Report 26127902 (Version 1)
Quarter: 2025Q4

REPORT INFORMATION
  Report Type: Spontaneous
  Country: CA (occurrence: CA)
  Receive Date: 20251206
  Receipt Date: 20251206
  Transmission Date: 20260117
  Serious: Yes (Hospitalization, Other)
  Sender: ACCORD
  Company Number: None

PATIENT
  Age: 35 Year
  Sex: Female

DRUGS (7)
  1. ONDANSETRON [Suspect]
     Active Substance: ONDANSETRON
     Indication: Vomiting
     Dosage: 1 EVERY 8 HOURS
     Route: 042
  2. DIMENHYDRINATE [Suspect]
     Active Substance: DIMENHYDRINATE
     Indication: Vomiting
     Dosage: 1 EVERY 4 HOURS
     Route: 042
  3. DOXYLAMINE SUCCINATE [Suspect]
     Active Substance: DOXYLAMINE SUCCINATE
     Indication: Vomiting
     Route: 048
  4. FAMOTIDINE [Suspect]
     Active Substance: FAMOTIDINE
     Indication: Vomiting
     Dosage: 1 EVERY 1 DAY
     Route: 042
  5. PROCHLORPERAZINE [Suspect]
     Active Substance: PROCHLORPERAZINE
     Indication: Vomiting
     Dosage: 1 EVERY 6 HOURS
     Route: 048
  6. SUMATRIPTAN [Suspect]
     Active Substance: SUMATRIPTAN
     Indication: Migraine
     Route: 048
  7. PROCHLORPERAZINE [Suspect]
     Active Substance: PROCHLORPERAZINE
     Indication: Vomiting
     Dosage: 1 EVERY 6 HOURS
     Route: 048

REACTIONS (4)
  - Drug ineffective [Unknown]
  - Exposure during pregnancy [Unknown]
  - Abortion spontaneous [Unknown]
  - Serotonin syndrome [Unknown]
